FAERS Safety Report 9880640 (Version 1)
Quarter: 2014Q1

REPORT INFORMATION
  Report Type: Spontaneous
  Country: US (occurrence: None)
  Receive Date: 20140206
  Receipt Date: 20140206
  Transmission Date: 20141002
  Serious: Yes (Hospitalization)
  Sender: FDA-Public Use
  Company Number: None

PATIENT
  Age: 66 Year
  Sex: Male
  Weight: 90.72 kg

DRUGS (2)
  1. PIPERACILLIN, TAZOBACTAM [Suspect]
     Indication: OSTEOMYELITIS
     Route: 042
  2. ZYVOX [Suspect]
     Route: 042

REACTIONS (1)
  - Blister [None]
